FAERS Safety Report 9236294 (Version 5)
Quarter: 2013Q4

REPORT INFORMATION
  Report Type: Spontaneous
  Country: US (occurrence: US)
  Receive Date: 20130417
  Receipt Date: 20131231
  Transmission Date: 20140711
  Serious: Yes (Hospitalization, Other)
  Sender: FDA-Public Use
  Company Number: US-009507513-1304USA005915

PATIENT
  Sex: Female
  Weight: 63.49 kg

DRUGS (1)
  1. NUVARING [Suspect]
     Indication: CONTRACEPTION
     Dosage: UNK
     Route: 067
     Dates: start: 20120201, end: 20120306

REACTIONS (13)
  - Pain in extremity [Unknown]
  - Pulmonary embolism [Unknown]
  - Ligament sprain [Unknown]
  - Hypomagnesaemia [Unknown]
  - Hypokalaemia [Unknown]
  - Hypothyroidism [Unknown]
  - Local swelling [Unknown]
  - Myalgia [Unknown]
  - Epistaxis [Unknown]
  - Gingival bleeding [Unknown]
  - Menorrhagia [Unknown]
  - Fatigue [Unknown]
  - Bronchitis [Unknown]
